FAERS Safety Report 14380449 (Version 3)
Quarter: 2018Q1

REPORT INFORMATION
  Report Type: Spontaneous
  Country: JP (occurrence: JP)
  Receive Date: 20180112
  Receipt Date: 20180305
  Transmission Date: 20180509
  Serious: Yes (Other)
  Sender: FDA-Public Use
  Company Number: JP-GLAXOSMITHKLINE-JP2018JPN003958

PATIENT
  Age: 9 Decade
  Sex: Female

DRUGS (3)
  1. FLUTIFORM AEROSOL [Concomitant]
     Dosage: 8 PUFF(S), 1D
  2. MEPOLIZUMAB [Suspect]
     Active Substance: MEPOLIZUMAB
     Indication: ASTHMA
     Dosage: 100 MG, UNK
     Route: 058
     Dates: start: 20171206
  3. PREDONINE [Concomitant]
     Active Substance: PREDNISOLONE
     Dosage: 7.5 MG, 1D

REACTIONS (2)
  - Pneumonia [Recovered/Resolved]
  - Adnexal torsion [Unknown]

NARRATIVE: CASE EVENT DATE: 201712
